FAERS Safety Report 8532626-8 (Version None)
Quarter: 2012Q3

REPORT INFORMATION
  Report Type: 
  Country: None (occurrence: None)
  Receive Date: 20120724
  Receipt Date: 20120711
  Transmission Date: 20120928
  Serious: Yes (Hospitalization, Other)
  Sender: FDA-Public Use
  Company Number: JP-SHIRE-SPV1-2010-00298

PATIENT

DRUGS (13)
  1. CALCIUM CARBONATE [Concomitant]
     Indication: HYPERPHOSPHATAEMIA
     Dosage: 1500 MG, UNKNOWN
     Route: 048
  2. OLMESARTAN MEDOXOMIL [Concomitant]
     Indication: PRODUCT USED FOR UNKNOWN INDICATION
     Dosage: 20 MG, UNKNOWN
     Route: 048
  3. CRESTOR [Suspect]
     Indication: PRODUCT USED FOR UNKNOWN INDICATION
     Dosage: 2.5 MG, UNKNOWN
     Route: 048
     Dates: start: 20090709, end: 20091008
  4. ALFAROL [Concomitant]
     Indication: PRODUCT USED FOR UNKNOWN INDICATION
     Dosage: .25 UG, UNK
     Route: 048
  5. EPINASTINE HYDROCHLORIDE [Concomitant]
     Indication: PRODUCT USED FOR UNKNOWN INDICATION
     Dosage: 20 MG, UNKNOWN
     Route: 048
  6. LASIX [Concomitant]
     Indication: PRODUCT USED FOR UNKNOWN INDICATION
     Dosage: 80 MG, UNKNOWN
     Route: 048
  7. LANTHANUM CARBONATE [Suspect]
     Indication: HYPERPHOSPHATAEMIA
     Dosage: 750 MG TOTAL DAILY DOSE, UNKNOWN
     Route: 048
     Dates: start: 20090402
  8. NORVASC [Concomitant]
     Indication: PRODUCT USED FOR UNKNOWN INDICATION
     Dosage: 5 MG, UNKNOWN
     Route: 048
  9. PERSANTIN [Concomitant]
     Indication: PRODUCT USED FOR UNKNOWN INDICATION
     Dosage: 150 MG, UNKNOWN
     Route: 048
  10. RENAGEL [Concomitant]
     Indication: HYPERPHOSPHATAEMIA
     Dosage: 1500 MG, UNKNOWN
     Route: 048
  11. CARVEDILOL [Concomitant]
     Indication: PRODUCT USED FOR UNKNOWN INDICATION
     Dosage: 10 MG, UNKNOWN
     Route: 048
  12. ZYLORIC                            /00003301/ [Concomitant]
     Indication: PRODUCT USED FOR UNKNOWN INDICATION
     Dosage: 100 MG, UNKNOWN
     Route: 048
  13. DEPAS [Concomitant]
     Indication: PRODUCT USED FOR UNKNOWN INDICATION
     Dosage: .5 MG, UNK
     Route: 048

REACTIONS (3)
  - PERITONITIS [None]
  - HYPOLIPIDAEMIA [None]
  - INGUINAL HERNIA [None]
